FAERS Safety Report 8840655 (Version 1)
Quarter: 2012Q4

REPORT INFORMATION
  Report Type: 
  Country: FR (occurrence: FR)
  Receive Date: 20121015
  Receipt Date: 20121015
  Transmission Date: 20130627
  Serious: Yes (Death, Other)
  Sender: FDA-Public Use
  Company Number: FR-PFIZER INC-2012154500

PATIENT
  Age: 48 Year
  Sex: Female
  Weight: 54 kg

DRUGS (2)
  1. TORISEL [Suspect]
     Indication: DIFFUSE LARGE B-CELL LYMPHOMA REFRACTORY
     Dosage: 25 mg, weekly
     Route: 042
     Dates: start: 20120523, end: 20120607
  2. RITUXIMAB [Concomitant]
     Dosage: UNK
     Route: 042
     Dates: start: 20120523

REACTIONS (4)
  - Death [Fatal]
  - Intestinal perforation [Not Recovered/Not Resolved]
  - Peritonitis [Not Recovered/Not Resolved]
  - Mucosal inflammation [Unknown]
